FAERS Safety Report 14870240 (Version 1)
Quarter: 2018Q2

REPORT INFORMATION
  Report Type: Spontaneous
  Country: US (occurrence: US)
  Receive Date: 20180509
  Receipt Date: 20180509
  Transmission Date: 20180711
  Serious: No
  Sender: FDA-Public Use
  Company Number: US-SA-2018SA034280

PATIENT
  Age: 48 Year
  Sex: Female

DRUGS (1)
  1. XYZAL ALLERGY 24HR [Suspect]
     Active Substance: LEVOCETIRIZINE DIHYDROCHLORIDE
     Dosage: START DATE WAS ~ 10 DAYS AGO
     Route: 065
     Dates: end: 20180204

REACTIONS (2)
  - Fatigue [Unknown]
  - Drug ineffective [Unknown]
